FAERS Safety Report 17352567 (Version 5)
Quarter: 2024Q4

REPORT INFORMATION
  Report Type: Report from Study
  Country: JP (occurrence: JP)
  Receive Date: 20200131
  Receipt Date: 20241018
  Transmission Date: 20250115
  Serious: Yes (Other)
  Sender: ALEXION PHARMACEUTICALS
  Company Number: JP-ALEXION PHARMACEUTICALS INC.-A202000838

PATIENT
  Age: 70 Year
  Weight: 111 kg

DRUGS (84)
  1. SOLIRIS [Suspect]
     Active Substance: ECULIZUMAB
     Indication: Myasthenia gravis
     Dosage: 900 MILLIGRAM, QW
  2. SOLIRIS [Suspect]
     Active Substance: ECULIZUMAB
     Dosage: 900 MILLIGRAM, QW
  3. SOLIRIS [Suspect]
     Active Substance: ECULIZUMAB
     Dosage: 900 MILLIGRAM, QW
  4. SOLIRIS [Suspect]
     Active Substance: ECULIZUMAB
     Dosage: 900 MILLIGRAM, QW
  5. SOLIRIS [Suspect]
     Active Substance: ECULIZUMAB
     Dosage: 1200 MILLIGRAM, Q2W
  6. SOLIRIS [Suspect]
     Active Substance: ECULIZUMAB
     Dosage: 1200 MILLIGRAM, Q2W
  7. SOLIRIS [Suspect]
     Active Substance: ECULIZUMAB
     Dosage: 1200 MILLIGRAM, Q2W
  8. SOLIRIS [Suspect]
     Active Substance: ECULIZUMAB
     Dosage: 1200 MILLIGRAM, Q2W
  9. PREDONINE [Concomitant]
     Active Substance: PREDNISOLONE
     Indication: Myasthenia gravis
     Dosage: 17.5 MILLIGRAM, QD
  10. PREDONINE [Concomitant]
     Active Substance: PREDNISOLONE
     Indication: Myasthenia gravis
     Dosage: 17.5 MILLIGRAM, QD
  11. PREDONINE [Concomitant]
     Active Substance: PREDNISOLONE
     Dosage: 17.5 MILLIGRAM, QD
  12. PREDONINE [Concomitant]
     Active Substance: PREDNISOLONE
     Dosage: 17.5 MILLIGRAM, QD
  13. PREDONINE [Concomitant]
     Active Substance: PREDNISOLONE
     Dosage: 15 MILLIGRAM, QD
  14. PREDONINE [Concomitant]
     Active Substance: PREDNISOLONE
     Dosage: 15 MILLIGRAM, QD
  15. PREDONINE [Concomitant]
     Active Substance: PREDNISOLONE
     Dosage: 15 MILLIGRAM, QD
  16. PREDONINE [Concomitant]
     Active Substance: PREDNISOLONE
     Dosage: 15 MILLIGRAM, QD
  17. PREDONINE [Concomitant]
     Active Substance: PREDNISOLONE
     Dosage: 13 MILLIGRAM, QD
  18. PREDONINE [Concomitant]
     Active Substance: PREDNISOLONE
     Dosage: 13 MILLIGRAM, QD
  19. PREDONINE [Concomitant]
     Active Substance: PREDNISOLONE
     Dosage: 13 MILLIGRAM, QD
  20. PREDONINE [Concomitant]
     Active Substance: PREDNISOLONE
     Dosage: 13 MILLIGRAM, QD
  21. PREDONINE [Concomitant]
     Active Substance: PREDNISOLONE
     Dosage: 12 MILLIGRAM, QD
  22. PREDONINE [Concomitant]
     Active Substance: PREDNISOLONE
     Dosage: 12 MILLIGRAM, QD
  23. PREDONINE [Concomitant]
     Active Substance: PREDNISOLONE
     Dosage: 12 MILLIGRAM, QD
  24. PREDONINE [Concomitant]
     Active Substance: PREDNISOLONE
     Dosage: 12 MILLIGRAM, QD
  25. PREDONINE [Concomitant]
     Active Substance: PREDNISOLONE
     Dosage: 11 MILLIGRAM, QD
  26. PREDONINE [Concomitant]
     Active Substance: PREDNISOLONE
     Dosage: 11 MILLIGRAM, QD
  27. PREDONINE [Concomitant]
     Active Substance: PREDNISOLONE
     Dosage: 11 MILLIGRAM, QD
  28. PREDONINE [Concomitant]
     Active Substance: PREDNISOLONE
     Dosage: 11 MILLIGRAM, QD
  29. PREDONINE [Concomitant]
     Active Substance: PREDNISOLONE
     Dosage: 10 MILLIGRAM, QD
  30. PREDONINE [Concomitant]
     Active Substance: PREDNISOLONE
     Dosage: 10 MILLIGRAM, QD
  31. PREDONINE [Concomitant]
     Active Substance: PREDNISOLONE
     Dosage: 10 MILLIGRAM, QD
  32. PREDONINE [Concomitant]
     Active Substance: PREDNISOLONE
     Dosage: 10 MILLIGRAM, QD
  33. PREDONINE [Concomitant]
     Active Substance: PREDNISOLONE
     Dosage: 8 MILLIGRAM, QD
  34. PREDONINE [Concomitant]
     Active Substance: PREDNISOLONE
     Dosage: 8 MILLIGRAM, QD
  35. PREDONINE [Concomitant]
     Active Substance: PREDNISOLONE
     Dosage: 8 MILLIGRAM, QD
  36. PREDONINE [Concomitant]
     Active Substance: PREDNISOLONE
     Dosage: 8 MILLIGRAM, QD
  37. PREDONINE [Concomitant]
     Active Substance: PREDNISOLONE
     Dosage: 7 MILLIGRAM, QD
  38. PREDONINE [Concomitant]
     Active Substance: PREDNISOLONE
     Dosage: 7 MILLIGRAM, QD
  39. PREDONINE [Concomitant]
     Active Substance: PREDNISOLONE
     Dosage: 7 MILLIGRAM, QD
  40. PREDONINE [Concomitant]
     Active Substance: PREDNISOLONE
     Dosage: 7 MILLIGRAM, QD
  41. PREDONINE [Concomitant]
     Active Substance: PREDNISOLONE
     Dosage: 8 MILLIGRAM, QD
  42. PREDONINE [Concomitant]
     Active Substance: PREDNISOLONE
     Dosage: 8 MILLIGRAM, QD
  43. PREDONINE [Concomitant]
     Active Substance: PREDNISOLONE
     Dosage: 8 MILLIGRAM, QD
  44. PREDONINE [Concomitant]
     Active Substance: PREDNISOLONE
     Dosage: 8 MILLIGRAM, QD
  45. PREDONINE [Concomitant]
     Active Substance: PREDNISOLONE
     Dosage: 10 MILLIGRAM, QD
  46. PREDONINE [Concomitant]
     Active Substance: PREDNISOLONE
     Dosage: 10 MILLIGRAM, QD
  47. PREDONINE [Concomitant]
     Active Substance: PREDNISOLONE
     Dosage: 10 MILLIGRAM, QD
  48. PREDONINE [Concomitant]
     Active Substance: PREDNISOLONE
     Dosage: 10 MILLIGRAM, QD
  49. PREDONINE [Concomitant]
     Active Substance: PREDNISOLONE
     Dosage: 9 MILLIGRAM, QD
  50. PREDONINE [Concomitant]
     Active Substance: PREDNISOLONE
     Dosage: 9 MILLIGRAM, QD
  51. PREDONINE [Concomitant]
     Active Substance: PREDNISOLONE
     Dosage: 9 MILLIGRAM, QD
  52. PREDONINE [Concomitant]
     Active Substance: PREDNISOLONE
     Dosage: 9 MILLIGRAM, QD
  53. PREDONINE [Concomitant]
     Active Substance: PREDNISOLONE
     Dosage: 8 MILLIGRAM, QD
  54. PREDONINE [Concomitant]
     Active Substance: PREDNISOLONE
     Dosage: 8 MILLIGRAM, QD
  55. PREDONINE [Concomitant]
     Active Substance: PREDNISOLONE
     Dosage: 8 MILLIGRAM, QD
  56. PREDONINE [Concomitant]
     Active Substance: PREDNISOLONE
     Dosage: 8 MILLIGRAM, QD
  57. PREDONINE [Concomitant]
     Active Substance: PREDNISOLONE
     Dosage: 7 MILLIGRAM, QD
  58. PREDONINE [Concomitant]
     Active Substance: PREDNISOLONE
     Dosage: 7 MILLIGRAM, QD
  59. PREDONINE [Concomitant]
     Active Substance: PREDNISOLONE
     Dosage: 7 MILLIGRAM, QD
  60. PREDONINE [Concomitant]
     Active Substance: PREDNISOLONE
     Dosage: 7 MILLIGRAM, QD
  61. PREDONINE [Concomitant]
     Active Substance: PREDNISOLONE
     Dosage: 6 MILLIGRAM, QD
  62. PREDONINE [Concomitant]
     Active Substance: PREDNISOLONE
     Dosage: 6 MILLIGRAM, QD
  63. PREDONINE [Concomitant]
     Active Substance: PREDNISOLONE
     Dosage: 6 MILLIGRAM, QD
  64. PREDONINE [Concomitant]
     Active Substance: PREDNISOLONE
     Dosage: 6 MILLIGRAM, QD
  65. IMURAN [Concomitant]
     Active Substance: AZATHIOPRINE
     Indication: Myasthenia gravis
     Dosage: 100 MILLIGRAM, QD
  66. IMURAN [Concomitant]
     Active Substance: AZATHIOPRINE
     Dosage: 100 MILLIGRAM, QD
  67. IMURAN [Concomitant]
     Active Substance: AZATHIOPRINE
     Dosage: 100 MILLIGRAM, QD
  68. IMURAN [Concomitant]
     Active Substance: AZATHIOPRINE
     Dosage: 100 MILLIGRAM, QD
  69. IMURAN [Concomitant]
     Active Substance: AZATHIOPRINE
     Dosage: 50 MILLIGRAM, QD
  70. IMURAN [Concomitant]
     Active Substance: AZATHIOPRINE
     Dosage: 50 MILLIGRAM, QD
  71. IMURAN [Concomitant]
     Active Substance: AZATHIOPRINE
     Dosage: 50 MILLIGRAM, QD
  72. IMURAN [Concomitant]
     Active Substance: AZATHIOPRINE
     Dosage: 50 MILLIGRAM, QD
  73. ROSUVASTATIN [Concomitant]
     Active Substance: ROSUVASTATIN
     Indication: Dyslipidaemia
     Dosage: 5 MILLIGRAM, QD
  74. ROSUVASTATIN [Concomitant]
     Active Substance: ROSUVASTATIN
     Dosage: 5 MILLIGRAM, QD
  75. ROSUVASTATIN [Concomitant]
     Active Substance: ROSUVASTATIN
     Dosage: 5 MILLIGRAM, QD
  76. ROSUVASTATIN [Concomitant]
     Active Substance: ROSUVASTATIN
     Dosage: 5 MILLIGRAM, QD
  77. METHYLCOBALAMIN [Concomitant]
     Active Substance: METHYLCOBALAMIN
     Indication: Nervous system disorder
     Dosage: 500 MICROGRAM, TID
  78. METHYLCOBALAMIN [Concomitant]
     Active Substance: METHYLCOBALAMIN
     Dosage: 500 MICROGRAM, TID
  79. METHYLCOBALAMIN [Concomitant]
     Active Substance: METHYLCOBALAMIN
     Dosage: 500 MICROGRAM, TID
  80. METHYLCOBALAMIN [Concomitant]
     Active Substance: METHYLCOBALAMIN
     Dosage: 500 MICROGRAM, TID
  81. BONALON [Concomitant]
     Active Substance: ALENDRONATE SODIUM
     Indication: Prophylaxis
     Dosage: 35 MILLIGRAM, QW
  82. BONALON [Concomitant]
     Active Substance: ALENDRONATE SODIUM
     Dosage: 35 MILLIGRAM, QW
  83. LEVOFLOXACIN [Concomitant]
     Active Substance: LEVOFLOXACIN
     Indication: Prophylaxis
     Dosage: 500 MILLIGRAM, QD
  84. LEVOFLOXACIN [Concomitant]
     Active Substance: LEVOFLOXACIN
     Dosage: 500 MILLIGRAM, QD

REACTIONS (5)
  - Arrhythmia [Recovering/Resolving]
  - Myasthenia gravis [Recovered/Resolved]
  - Faeces soft [Unknown]
  - Pain in extremity [Unknown]
  - Hypoaesthesia [Unknown]
